FAERS Safety Report 4627348-X (Version None)
Quarter: 2005Q1

REPORT INFORMATION
  Report Type: 
  Country: None (occurrence: None)
  Receive Date: 20050331
  Receipt Date: 20050318
  Transmission Date: 20050727
  Serious: Yes (Other)
  Sender: FDA-Public Use
  Company Number: 430005M05DEU

PATIENT
  Age: 47 Year
  Sex: Female
  Weight: 65 kg

DRUGS (2)
  1. NOVANTRONE [Suspect]
     Indication: SECONDARY PROGRESSIVE MULTIPLE SCLEROSIS
     Dosage: , 11 CYCLE,
     Dates: start: 20010301, end: 20030601
  2. REBIF [Concomitant]

REACTIONS (1)
  - ACUTE PROMYELOCYTIC LEUKAEMIA [None]
